FAERS Safety Report 16642984 (Version 3)
Quarter: 2019Q3

REPORT INFORMATION
  Report Type: Spontaneous
  Country: US (occurrence: US)
  Receive Date: 20190729
  Receipt Date: 20190904
  Transmission Date: 20191004
  Serious: No
  Sender: FDA-Public Use
  Company Number: US-PFIZER INC-2019321720

PATIENT
  Age: 66 Year
  Sex: Female
  Weight: 95.69 kg

DRUGS (8)
  1. GABAPENTIN. [Suspect]
     Active Substance: GABAPENTIN
     Indication: FIBROMYALGIA
  2. LISINOPRIL [LISINOPRIL DIHYDRATE] [Concomitant]
     Dosage: UNK UNK, 1X/DAY(20/12.5 MG 1X A DAY)
  3. IBUPROFEN [IBUPROFEN SODIUM] [Concomitant]
     Dosage: 100 MG, 3X/DAY
  4. BUPROPION. [Concomitant]
     Active Substance: BUPROPION
     Dosage: 100 MG, 3X/DAY
  5. AMITRIPTYLINE [AMITRIPTYLINE HYDROCHLORIDE] [Concomitant]
     Active Substance: AMITRIPTYLINE HYDROCHLORIDE
     Dosage: 50 MG, 1X/DAY(AT NIGHT)
  6. CYCLOBENZAPRINE HCL [Concomitant]
     Active Substance: CYCLOBENZAPRINE HYDROCHLORIDE
     Dosage: 5 MG, AS NEEDED
  7. GABAPENTIN. [Suspect]
     Active Substance: GABAPENTIN
     Indication: NEURALGIA
     Dosage: UNK
  8. ACETAMINOPHEN W/OXYCODONE [Concomitant]
     Active Substance: ACETAMINOPHEN\OXYCODONE HYDROCHLORIDE
     Dosage: UNK (5-325 MG)

REACTIONS (4)
  - Product use in unapproved indication [Unknown]
  - Nausea [Unknown]
  - Vertigo [Unknown]
  - Off label use [Unknown]
